FAERS Safety Report 21416443 (Version 3)
Quarter: 2022Q4

REPORT INFORMATION
  Report Type: Spontaneous
  Country: US (occurrence: US)
  Receive Date: 20221006
  Receipt Date: 20221027
  Transmission Date: 20230113
  Serious: No
  Sender: FDA-Public Use
  Company Number: US-SANOFI-01303978

PATIENT
  Age: 50 Year
  Sex: Female

DRUGS (1)
  1. LANTUS [Suspect]
     Active Substance: INSULIN GLARGINE
     Indication: Type 1 diabetes mellitus
     Dosage: 23 IU, QD

REACTIONS (4)
  - Visual impairment [Unknown]
  - Blood glucose abnormal [Unknown]
  - Drug ineffective [Unknown]
  - Liquid product physical issue [Unknown]
